FAERS Safety Report 9866978 (Version 3)
Quarter: 2014Q2

REPORT INFORMATION
  Report Type: Spontaneous
  Country: JP (occurrence: JP)
  Receive Date: 20140204
  Receipt Date: 20140513
  Transmission Date: 20141212
  Serious: Yes (Other)
  Sender: FDA-Public Use
  Company Number: JP-ROCHE-1343239

PATIENT
  Age: 75 Year
  Sex: Female

DRUGS (11)
  1. LUCENTIS [Suspect]
     Indication: RETINAL VEIN OCCLUSION
     Dosage: LEFT EYE
     Route: 050
     Dates: start: 20131029
  2. LUCENTIS [Suspect]
     Route: 050
     Dates: start: 20140414
  3. HYALEIN [Concomitant]
     Route: 065
     Dates: start: 20131009, end: 20131109
  4. PATANOL [Concomitant]
     Route: 065
     Dates: start: 20131009, end: 20131109
  5. NEVANAC [Concomitant]
     Route: 065
     Dates: start: 20131222, end: 20131225
  6. VIGAMOX [Concomitant]
     Route: 065
     Dates: start: 20131222, end: 20131225
  7. FLOMOX (JAPAN) [Concomitant]
     Route: 065
     Dates: start: 20131222, end: 20131225
  8. BAYASPIRIN [Concomitant]
     Route: 065
     Dates: start: 20131227, end: 20140110
  9. KALLIKREIN [Concomitant]
     Route: 065
     Dates: start: 20131227, end: 20140110
  10. METHYCOBAL [Concomitant]
     Route: 065
     Dates: start: 20131227, end: 20140110
  11. RINDERON [Concomitant]
     Route: 065
     Dates: start: 20131222, end: 20131225

REACTIONS (3)
  - Retinal artery occlusion [Not Recovered/Not Resolved]
  - Visual impairment [Not Recovered/Not Resolved]
  - Glaucoma [Unknown]
